FAERS Safety Report 19516969 (Version 1)
Quarter: 2021Q3

REPORT INFORMATION
  Report Type: Spontaneous
  Country: DK (occurrence: DK)
  Receive Date: 20210711
  Receipt Date: 20210711
  Transmission Date: 20211014
  Serious: Yes (Hospitalization)
  Sender: FDA-Public Use
  Company Number: DK-AMGEN-DNKSP2021102259

PATIENT
  Age: 80 Year
  Sex: Female

DRUGS (7)
  1. OMEPRAZOL [OMEPRAZOLE] [Concomitant]
     Active Substance: OMEPRAZOLE
     Indication: GASTROOESOPHAGEAL REFLUX DISEASE
     Dosage: 40 MILLIGRAM, QD (STRENGTH: 20 MG)
     Route: 048
     Dates: start: 20181109
  2. SPARKAL [Concomitant]
     Active Substance: AMILORIDE HYDROCHLORIDE
     Indication: DIURETIC THERAPY
     Dosage: 1 DOSAGE FORM, QD (STRENGTH: 50+5 MG)
     Route: 048
     Dates: start: 20190803
  3. PROLIA [Suspect]
     Active Substance: DENOSUMAB
     Indication: OSTEOPOROSIS
     Dosage: 1 DOSAGE FORM, Q6MO (STRENGTH: 60 MG/ML)
     Route: 058
     Dates: start: 20141127
  4. OCULAC [POVIDONE] [Concomitant]
     Active Substance: POVIDONE
     Indication: EYE LUBRICATION THERAPY
     Dosage: 4 DOSAGE FORM, QD (STRENGTH: 50 MG/ML)
     Route: 047
     Dates: start: 20170517
  5. PANODIL [Concomitant]
     Active Substance: ACETAMINOPHEN
     Indication: PAIN
     Dosage: 3990 MILLIGRAM, QD (STRENGTH: 665 MG)
     Route: 048
     Dates: start: 20200825
  6. KODIMAGNYL IKKE?STOPPENDE [ACETYLSALICYLIC ACID;CODEINE PHOSPHATE;MAGN [Concomitant]
     Indication: PAIN
     Dosage: 2 DOSAGE FORM (STRENGTH: 500+9.6 MGMAXIMUM DAILY DOSE: 2 DF 4 TIMES A DAY)
     Route: 048
     Dates: start: 20200901
  7. COMIRNATY [Interacting]
     Active Substance: TOZINAMERAN
     Indication: COVID-19 IMMUNISATION
     Dosage: 1 DOSAGE FORM
     Route: 065
     Dates: start: 20210404, end: 20210428

REACTIONS (5)
  - Myalgia [Recovering/Resolving]
  - Drug interaction [Recovered/Resolved]
  - Joint swelling [Recovering/Resolving]
  - Arthritis reactive [Not Recovered/Not Resolved]
  - Pain of skin [Recovered/Resolved]

NARRATIVE: CASE EVENT DATE: 20210511
